FAERS Safety Report 8856364 (Version 1)
Quarter: 2012Q4

REPORT INFORMATION
  Report Type: 
  Country: US (occurrence: US)
  Receive Date: 20121023
  Receipt Date: 20121023
  Transmission Date: 20130627
  Serious: No
  Sender: FDA-Public Use
  Company Number: US-AMGEN-USASP2012057316

PATIENT
  Sex: Male

DRUGS (12)
  1. ENBREL [Suspect]
     Indication: PRODUCT USED FOR UNKNOWN INDICATION
     Dosage: 50 mg, qwk
     Route: 058
  2. METHOTREXATE [Concomitant]
     Dosage: 2.5 mg, UNK
  3. TERAZOSIN [Concomitant]
     Dosage: 2 mg, UNK
  4. FINASTERIDE [Concomitant]
     Dosage: 5 mg, UNK
  5. ALLOPURINOL [Concomitant]
     Dosage: 300 mg, UNK
  6. LISINOPRIL [Concomitant]
     Dosage: 20 mg, UNK
  7. TEGRETOL [Concomitant]
     Dosage: 200 mg, UNK
  8. MULTIVITAMIN                       /00097801/ [Concomitant]
     Dosage: UNK
  9. COD LIVER [Concomitant]
     Dosage: UNK
  10. FOLIC ACID [Concomitant]
     Dosage: 20 mg, UNK
  11. FISH OIL [Concomitant]
     Dosage: UNK
  12. RANITIDINE [Concomitant]
     Dosage: 150 mg, UNK

REACTIONS (1)
  - Injection site bruising [Unknown]
